FAERS Safety Report 24313580 (Version 2)
Quarter: 2024Q3

REPORT INFORMATION
  Report Type: Spontaneous
  Country: US (occurrence: US)
  Receive Date: 20240912
  Receipt Date: 20240913
  Transmission Date: 20241017
  Serious: Yes (Other)
  Sender: MERCK
  Company Number: US-009507513-2409USA004001

PATIENT
  Age: 76 Year
  Sex: Female

DRUGS (6)
  1. KEYTRUDA [Suspect]
     Active Substance: PEMBROLIZUMAB
     Indication: Vulval cancer metastatic
     Dosage: UNK
     Dates: start: 20170921, end: 20180130
  2. KEYTRUDA [Suspect]
     Active Substance: PEMBROLIZUMAB
     Indication: Metastases to liver
     Dosage: UNK
     Dates: start: 20180409, end: 20180430
  3. KEYTRUDA [Suspect]
     Active Substance: PEMBROLIZUMAB
     Indication: Metastatic malignant melanoma
  4. IPILIMUMAB [Suspect]
     Active Substance: IPILIMUMAB
     Indication: Metastatic malignant melanoma
     Dosage: UNK
     Dates: start: 20171130, end: 20180130
  5. IPILIMUMAB [Suspect]
     Active Substance: IPILIMUMAB
     Indication: Vulval cancer metastatic
  6. IPILIMUMAB [Suspect]
     Active Substance: IPILIMUMAB
     Indication: Metastases to liver

REACTIONS (1)
  - Immune-mediated hepatic disorder [Recovering/Resolving]
